FAERS Safety Report 5229368-3 (Version None)
Quarter: 2007Q1

REPORT INFORMATION
  Report Type: 
  Country: None (occurrence: None)
  Receive Date: 20070129
  Receipt Date: 20070118
  Transmission Date: 20070707
  Serious: Yes (Hospitalization)
  Sender: FDA-Public Use
  Company Number: 200711180

PATIENT
  Age: 54 Year
  Sex: Male
  Weight: 99.7 kg

DRUGS (2)
  1. ALBUMIN (HUMAN) [Suspect]
     Dosage: SEE IMAGE
     Route: 042
     Dates: start: 20070108, end: 20070108
  2. ALBUMIN (HUMAN) [Suspect]

REACTIONS (9)
  - ACTINOMYCOSIS [None]
  - BLOOD CULTURE POSITIVE [None]
  - CHILLS [None]
  - HAEMOLYSIS [None]
  - HYPOTENSION [None]
  - MYASTHENIA GRAVIS [None]
  - POST PROCEDURAL COMPLICATION [None]
  - STENOTROPHOMONAS INFECTION [None]
  - TACHYCARDIA [None]
